FAERS Safety Report 26188006 (Version 1)
Quarter: 2025Q4

REPORT INFORMATION
  Report Type: Spontaneous
  Country: US (occurrence: US)
  Receive Date: 20251222
  Receipt Date: 20251222
  Transmission Date: 20260118
  Serious: Yes (Hospitalization)
  Sender: SANDOZ
  Company Number: US-SANDOZ-SDZ2025US093551

PATIENT
  Age: 60 Year
  Sex: Female

DRUGS (7)
  1. ENOXAPARIN [Suspect]
     Active Substance: ENOXAPARIN
     Indication: Oedema
     Dosage: 100 MG, BID, START DATE: 28-NOV-2025 00:00
     Dates: end: 20251201
  2. APIXABAN [Suspect]
     Active Substance: APIXABAN
     Indication: Pancreatic carcinoma
     Dosage: 5 MG, BID
     Dates: start: 20250625, end: 20251125
  3. APIXABAN [Suspect]
     Active Substance: APIXABAN
     Dosage: 5 MG, BID
     Dates: start: 20251202
  4. FERROUS SULFATE [Suspect]
     Active Substance: FERROUS SULFATE
     Indication: Blood iron decreased
     Dosage: 325 MG, QD
     Dates: start: 20251128
  5. LASIX [Suspect]
     Active Substance: FUROSEMIDE
     Indication: Oedema
     Dosage: 40 MG, BID
     Dates: start: 20251128
  6. HEPARIN [Suspect]
     Active Substance: HEPARIN SODIUM
     Indication: Oedema
     Dosage: UNK
     Dates: start: 20251125, end: 20251128
  7. CHLORPHENIRAMINE MALEATE\PHENYLPROPANOLAMINE HYDROCHLORIDE [Suspect]
     Active Substance: CHLORPHENIRAMINE MALEATE\PHENYLPROPANOLAMINE HYDROCHLORIDE
     Indication: Product used for unknown indication

REACTIONS (1)
  - Oedema peripheral [Recovered/Resolved]
